FAERS Safety Report 6808937-0 (Version None)
Quarter: 2010Q2

REPORT INFORMATION
  Report Type: 
  Country: None (occurrence: None)
  Receive Date: 20100630
  Receipt Date: 20091116
  Transmission Date: 20101027
  Serious: No
  Sender: FDA-Public Use
  Company Number: US-PFIZER INC-2009280984

PATIENT
  Sex: Female
  Weight: 70.748 kg

DRUGS (4)
  1. XANAX [Suspect]
     Indication: SLEEP DISORDER
     Route: 048
     Dates: start: 20080101, end: 20090901
  2. XANAX XR [Suspect]
     Indication: SLEEP DISORDER
     Dosage: 1 MG, UNK
     Route: 048
     Dates: start: 20090928
  3. LISINOPRIL [Concomitant]
     Indication: HYPERTENSION
  4. TETRACYCLINE HYDROCHLORIDE [Concomitant]

REACTIONS (2)
  - MIDDLE INSOMNIA [None]
  - SOMNOLENCE [None]
